FAERS Safety Report 12313696 (Version 2)
Quarter: 2016Q2

REPORT INFORMATION
  Report Type: Spontaneous
  Country: US (occurrence: US)
  Receive Date: 20160428
  Receipt Date: 20160510
  Transmission Date: 20160815
  Serious: No
  Sender: FDA-Public Use
  Company Number: 2015-000486 WARNER CHILCOTT

PATIENT
  Age: 71 Year
  Sex: Male

DRUGS (7)
  1. LITHIUM CARBONATE. [Concomitant]
     Active Substance: LITHIUM CARBONATE
  2. METOPROLOL. [Concomitant]
     Active Substance: METOPROLOL
  3. MULTIVIT [Concomitant]
     Active Substance: VITAMINS
  4. RISPERIDONE. [Concomitant]
     Active Substance: RISPERIDONE
  5. CALCIUM +D [Concomitant]
     Active Substance: CALCIUM\VITAMIN D
  6. VISTARIL [Concomitant]
     Active Substance: HYDROXYZINE PAMOATE
  7. ACTONEL [Suspect]
     Active Substance: RISEDRONATE SODIUM
     Indication: OSTEOPOROSIS
     Route: 048
     Dates: start: 201304, end: 201404

REACTIONS (4)
  - Pain in extremity [Unknown]
  - Oedema peripheral [Unknown]
  - Gout [Unknown]
  - Pruritus [Unknown]

NARRATIVE: CASE EVENT DATE: 201411
